FAERS Safety Report 10219635 (Version 1)
Quarter: 2014Q2

REPORT INFORMATION
  Report Type: Spontaneous
  Country: US (occurrence: None)
  Receive Date: 20140604
  Receipt Date: 20140604
  Transmission Date: 20141212
  Serious: Yes (Hospitalization)
  Sender: FDA-Public Use
  Company Number: None

PATIENT
  Age: 68 Year
  Sex: Male
  Weight: 94.6 kg

DRUGS (1)
  1. WARFARIN [Suspect]
     Route: 048
     Dates: start: 19940316

REACTIONS (11)
  - Fall [None]
  - Encephalopathy [None]
  - Hyponatraemia [None]
  - Dysphagia [None]
  - Drug dose omission [None]
  - Muscle rigidity [None]
  - Peritoneal haemorrhage [None]
  - Anaemia [None]
  - Haematoma [None]
  - International normalised ratio increased [None]
  - Treatment failure [None]
